FAERS Safety Report 6507262-5 (Version None)
Quarter: 2009Q4

REPORT INFORMATION
  Report Type: 
  Country: None (occurrence: None)
  Receive Date: 20091221
  Receipt Date: 20091216
  Transmission Date: 20100525
  Serious: Yes (Death, Hospitalization)
  Sender: FDA-Public Use
  Company Number: PHHY2009SI56239

PATIENT
  Age: 63 Year
  Sex: Male

DRUGS (5)
  1. EXELON [Suspect]
     Indication: DEMENTIA ALZHEIMER'S TYPE
     Dosage: 4.6 MG / 24 HOURS
     Route: 062
     Dates: start: 20090414
  2. EXELON [Suspect]
     Dosage: 9.5 MG/ 24 HOURS
     Route: 062
     Dates: start: 20090514
  3. MARIVARIN [Concomitant]
  4. TEGRETOL [Concomitant]
  5. INSULIN [Concomitant]

REACTIONS (1)
  - PNEUMONIA ASPIRATION [None]
